FAERS Safety Report 5766092-2 (Version None)
Quarter: 2008Q2

REPORT INFORMATION
  Report Type: 
  Country: None (occurrence: None)
  Receive Date: 20080611
  Receipt Date: 20080605
  Transmission Date: 20081010
  Serious: Yes (Hospitalization)
  Sender: FDA-Public Use
  Company Number: FI-SANOFI-SYNTHELABO-A01200806367

PATIENT
  Age: 36 Year
  Sex: Female

DRUGS (4)
  1. RISPERDAL [Concomitant]
     Indication: DEPRESSION
     Dosage: 0.5 MG
     Dates: start: 20000101
  2. SERTRALINE [Concomitant]
     Indication: DEPRESSION
     Dosage: 75 MG
     Dates: start: 20000101
  3. XELODA [Concomitant]
     Indication: COLON CANCER
     Dosage: 2 G
     Route: 048
     Dates: start: 20080222
  4. ELOXATIN [Suspect]
     Indication: COLON CANCER
     Dosage: 180 MG
     Route: 041

REACTIONS (1)
  - MAJOR DEPRESSION [None]
